FAERS Safety Report 16717496 (Version 1)
Quarter: 2019Q3

REPORT INFORMATION
  Report Type: Report from Study
  Country: US (occurrence: US)
  Receive Date: 20190819
  Receipt Date: 20190819
  Transmission Date: 20191005
  Serious: Yes (Hospitalization, Other)
  Sender: FDA-Public Use
  Company Number: US-ACTELION-A-US2017-160139

PATIENT
  Sex: Female
  Weight: 99.77 kg

DRUGS (3)
  1. XARELTO [Concomitant]
     Active Substance: RIVAROXABAN
  2. OPSUMIT [Suspect]
     Active Substance: MACITENTAN
     Indication: PULMONARY ARTERIAL HYPERTENSION
     Dosage: 10 MG, QD
     Route: 048
  3. DILTIAZEM. [Concomitant]
     Active Substance: DILTIAZEM

REACTIONS (11)
  - Blindness [Unknown]
  - Macular degeneration [Unknown]
  - Dyspnoea [Unknown]
  - Oedema peripheral [Unknown]
  - Fatigue [Unknown]
  - Cough [Unknown]
  - Oxygen therapy [Unknown]
  - Hypotension [Unknown]
  - Dizziness [Unknown]
  - Visual impairment [Unknown]
  - Cardiac failure congestive [Unknown]
